FAERS Safety Report 17787725 (Version 1)
Quarter: 2020Q2

REPORT INFORMATION
  Report Type: Report from Study
  Country: LB (occurrence: LB)
  Receive Date: 20200514
  Receipt Date: 20200514
  Transmission Date: 20200714
  Serious: Yes (Death, Hospitalization, Other)
  Sender: FDA-Public Use
  Company Number: NVSC2020LB028422

PATIENT
  Age: 13 Year
  Sex: Female
  Weight: 40 kg

DRUGS (4)
  1. JADENU [Suspect]
     Active Substance: DEFERASIROX
     Dosage: 1 DF, QD (180 MG)
     Route: 048
     Dates: start: 201907
  2. REVOLADE [Suspect]
     Active Substance: ELTROMBOPAG
     Indication: THROMBOCYTOPENIA
     Dosage: 1 DF, QD
     Route: 048
     Dates: start: 201909
  3. DANAZOL. [Concomitant]
     Active Substance: DANAZOL
     Indication: PRODUCT USED FOR UNKNOWN INDICATION
     Dosage: UNK
     Route: 065
  4. JADENU [Suspect]
     Active Substance: DEFERASIROX
     Indication: IRON OVERLOAD
     Dosage: 2 DF, QD (360 MG)
     Route: 048
     Dates: start: 201907

REACTIONS (6)
  - Bronchitis [Recovered/Resolved]
  - Disease progression [Fatal]
  - Blast cells present [Not Recovered/Not Resolved]
  - Thrombocytopenia [Recovered/Resolved]
  - Pneumothorax [Unknown]
  - Emphysema [Fatal]

NARRATIVE: CASE EVENT DATE: 20190928
